FAERS Safety Report 20489931 (Version 5)
Quarter: 2022Q3

REPORT INFORMATION
  Report Type: Spontaneous
  Country: JP (occurrence: JP)
  Receive Date: 20220218
  Receipt Date: 20220708
  Transmission Date: 20221027
  Serious: Yes (Death, Other)
  Sender: FDA-Public Use
  Company Number: JP-GSKNCCC-Case-01424173_AE-54925

PATIENT

DRUGS (19)
  1. SOTROVIMAB [Suspect]
     Active Substance: SOTROVIMAB
     Indication: SARS-CoV-2 test positive
     Dosage: 500 MG/100ML/30MIN, QD
     Route: 041
     Dates: start: 20220214, end: 20220214
  2. SOTROVIMAB [Suspect]
     Active Substance: SOTROVIMAB
     Indication: COVID-19
  3. CALONAL [Concomitant]
     Active Substance: ACETAMINOPHEN
     Indication: Pyrexia
     Dosage: 500 MG, WHEN HAVING PYREXIA
     Route: 048
     Dates: start: 20220213, end: 20220214
  4. COMIRNATY [Concomitant]
     Active Substance: TOZINAMERAN
     Indication: COVID-19 prophylaxis
     Dosage: UNK
     Dates: start: 20220208
  5. LEVOTHYROXINE SODIUM [Concomitant]
     Active Substance: LEVOTHYROXINE SODIUM
     Indication: Hypothyroidism
     Dosage: 87.5 ?G/DAY
  6. ALLOPURINOL [Concomitant]
     Active Substance: ALLOPURINOL
     Indication: Hyperuricaemia
     Dosage: 100 MG/DAY
  7. CARVEDILOL [Concomitant]
     Active Substance: CARVEDILOL
     Indication: Hypertension
     Dosage: 10 MG
  8. ALFACALCIDOL TABLET [Concomitant]
     Indication: Hypoparathyroidism secondary
     Dosage: 0.25 ?G/DAY
  9. MUCOSTA TABLETS [Concomitant]
     Indication: Gastritis
     Dosage: 200 MG/DAY
  10. SENNA [Concomitant]
     Active Substance: SENNA LEAF\SENNOSIDES\SENNOSIDES A AND B
     Indication: Constipation
     Dosage: 240 MG/DAY
  11. APRINDINE HYDROCHLORIDE [Concomitant]
     Active Substance: APRINDINE HYDROCHLORIDE
     Indication: Tachyarrhythmia
     Dosage: 40 MG/DAY
  12. NIFEDIPINE CR TABLETS [Concomitant]
     Indication: Hypertension
     Dosage: 50 MG/DAY
  13. SHAKUYAKUKANZOTO [Concomitant]
     Active Substance: HERBALS
     Indication: Muscle spasms
     Dosage: 4 G/DAY
  14. GASCON TABLET (DIMETHICONE) [Concomitant]
     Indication: Flatulence
     Dosage: 240 MG/DAY
  15. BETAHISTINE MESILATE TABLET [Concomitant]
     Indication: Dizziness
     Dosage: 18 MG/DAY
  16. PRECIPITATED CALCIUM CARBONATE TABLETS [Concomitant]
     Indication: Hyperphosphataemia
     Dosage: 3000 MG/DAY
  17. FERRIC CITRATE ANHYDROUS [Concomitant]
     Active Substance: FERRIC CITRATE ANHYDROUS
     Indication: Hyperphosphataemia
     Dosage: 750 MG/DAY
  18. NAUZELIN TABLETS [Concomitant]
     Indication: Gastritis
     Dosage: 15 MG/DAY
  19. OXYGEN [Concomitant]
     Active Substance: OXYGEN
     Dosage: 1 L
     Dates: start: 20220214

REACTIONS (5)
  - Death [Fatal]
  - Cardiac arrest [Fatal]
  - Arrhythmia [Fatal]
  - Faeces soft [Fatal]
  - Drug ineffective [Unknown]
